FAERS Safety Report 10047572 (Version 1)
Quarter: 2014Q1

REPORT INFORMATION
  Report Type: Spontaneous
  Country: US (occurrence: None)
  Receive Date: 20140328
  Receipt Date: 20140328
  Transmission Date: 20141002
  Serious: Yes (Life-Threatening, Hospitalization, Other)
  Sender: FDA-Public Use
  Company Number: None

PATIENT
  Age: 75 Year
  Sex: Female
  Weight: 60 kg

DRUGS (1)
  1. METFORMIN 1000MG [Suspect]
     Indication: DIABETES MELLITUS
     Route: 048
     Dates: start: 20140320, end: 20140326

REACTIONS (2)
  - Multi-organ failure [None]
  - Haemodialysis [None]
